FAERS Safety Report 15262551 (Version 3)
Quarter: 2019Q1

REPORT INFORMATION
  Report Type: Spontaneous
  Country: US (occurrence: US)
  Receive Date: 20180809
  Receipt Date: 20190205
  Transmission Date: 20190417
  Serious: No
  Sender: FDA-Public Use
  Company Number: US-BIOMARINAP-US-2018-119359

PATIENT
  Age: 17 Year
  Sex: Female

DRUGS (1)
  1. ALDURAZYME [Suspect]
     Active Substance: LARONIDASE
     Indication: MUCOPOLYSACCHARIDOSIS I
     Dosage: 23.20, UNK, UNK
     Route: 041
     Dates: start: 20180613

REACTIONS (4)
  - Ear pruritus [Unknown]
  - Feeling hot [Unknown]
  - Erythema [Unknown]
  - Hernia [Unknown]
